FAERS Safety Report 14529645 (Version 2)
Quarter: 2018Q1

REPORT INFORMATION
  Report Type: Spontaneous
  Country: US (occurrence: US)
  Receive Date: 20180214
  Receipt Date: 20180312
  Transmission Date: 20180509
  Serious: Yes (Other)
  Sender: FDA-Public Use
  Company Number: US-BIOGEN-2018BI00525195

PATIENT
  Sex: Female

DRUGS (1)
  1. SPINRAZA [Suspect]
     Active Substance: NUSINERSEN
     Indication: SPINAL MUSCULAR ATROPHY
     Route: 065
     Dates: start: 20170418

REACTIONS (8)
  - Drug dose omission [Unknown]
  - Euphoric mood [Recovered/Resolved]
  - Injection site pain [Recovered/Resolved]
  - Post procedural inflammation [Recovered/Resolved]
  - Vein rupture [Recovered/Resolved]
  - Spinal fusion acquired [Unknown]
  - Procedural anxiety [Recovered/Resolved]
  - Hunger [Recovered/Resolved]
